FAERS Safety Report 4445482-4 (Version None)
Quarter: 2004Q2

REPORT INFORMATION
  Report Type: 
  Country: None (occurrence: None)
  Receive Date: 20040609
  Receipt Date: 20031105
  Transmission Date: 20050107
  Serious: Yes (Other)
  Sender: FDA-Public Use
  Company Number: 200308868

PATIENT
  Age: 14 Year
  Sex: Female

DRUGS (8)
  1. HUMATE-P [Suspect]
     Indication: VON WILLEBRAND'S DISEASE
     Dosage: SEE IMAGE
     Route: 042
     Dates: start: 20031104
  2. HUMATE-P [Suspect]
     Indication: VON WILLEBRAND'S DISEASE
     Dosage: SEE IMAGE
     Route: 042
     Dates: start: 20031104
  3. HUMATE-P [Suspect]
     Indication: VON WILLEBRAND'S DISEASE
     Dosage: SEE IMAGE
     Route: 042
     Dates: start: 20031110
  4. HUMATE-P [Suspect]
     Indication: VON WILLEBRAND'S DISEASE
     Dosage: SEE IMAGE
     Route: 042
     Dates: start: 20031111
  5. HUMATE-P [Suspect]
  6. ALLEGRA [Concomitant]
  7. SINGULAIR [Concomitant]
  8. EPIPEN [Concomitant]

REACTIONS (5)
  - BREATH SOUNDS DECREASED [None]
  - CHEST DISCOMFORT [None]
  - CHILLS [None]
  - HYPERSENSITIVITY [None]
  - WHEEZING [None]
